FAERS Safety Report 22308252 (Version 1)
Quarter: 2023Q2

REPORT INFORMATION
  Report Type: Spontaneous
  Country: CN (occurrence: CN)
  Receive Date: 20230511
  Receipt Date: 20230511
  Transmission Date: 20230722
  Serious: Yes (Hospitalization, Other)
  Sender: FDA-Public Use
  Company Number: None

PATIENT
  Age: 2 Year
  Sex: Male
  Weight: 19 kg

DRUGS (4)
  1. CYCLOPHOSPHAMIDE [Suspect]
     Active Substance: CYCLOPHOSPHAMIDE
     Indication: Acute lymphocytic leukaemia
     Dosage: 0.709 G, QD, DILUTED WITH 0.9% SODIUM CHLORIDE 250 ML
     Route: 041
     Dates: start: 20230217, end: 20230217
  2. SODIUM CHLORIDE [Suspect]
     Active Substance: SODIUM CHLORIDE
     Indication: Medication dilution
     Dosage: 250 ML, QD, STRENGTH: 0.9%, USED TO DILUTE CYCLOPHOSPHAMIDE 0.709G
     Route: 041
     Dates: start: 20230217, end: 20230217
  3. SODIUM CHLORIDE [Suspect]
     Active Substance: SODIUM CHLORIDE
     Dosage: 250 ML, Q12H, STRENGTH: 0.9%, USED TO DILUTE CYTARABINE 0.709G
     Route: 041
     Dates: start: 20230217, end: 20230218
  4. CYTARABINE [Suspect]
     Active Substance: CYTARABINE
     Indication: Acute lymphocytic leukaemia
     Dosage: 0.709 G, Q12H, DILUTED WITH 0.9% SODIUM CHLORIDE 250 ML
     Route: 041
     Dates: start: 20230217, end: 20230218

REACTIONS (3)
  - Myelosuppression [Recovering/Resolving]
  - Platelet count decreased [Recovering/Resolving]
  - White blood cell count decreased [Recovering/Resolving]

NARRATIVE: CASE EVENT DATE: 20230223
